FAERS Safety Report 4473781-9 (Version None)
Quarter: 2004Q3

REPORT INFORMATION
  Report Type: 
  Country: None (occurrence: None)
  Receive Date: 20040910
  Receipt Date: 20040811
  Transmission Date: 20050211
  Serious: No
  Sender: FDA-Public Use
  Company Number: 2004228315US

PATIENT
  Age: 51 Year
  Sex: Male
  Weight: 88.4 kg

DRUGS (3)
  1. BEXTRA [Suspect]
     Dosage: 10 MG
     Dates: start: 20040701
  2. HYDROCHLOROTHIAZIDE [Concomitant]
  3. LIPITOR [Concomitant]

REACTIONS (1)
  - MOOD SWINGS [None]
